FAERS Safety Report 7272080-X (Version None)
Quarter: 2010Q4

REPORT INFORMATION
  Report Type: 
  Country: None (occurrence: None)
  Receive Date: 20101130
  Receipt Date: 20090727
  Transmission Date: 20110411
  Serious: Yes (Hospitalization, Disabling)
  Sender: FDA-Public Use
  Company Number: 2008-177156-NL

PATIENT
  Age: 37 Year
  Sex: Female
  Weight: 83.9 kg

DRUGS (1)
  1. NUVARING [Suspect]
     Indication: CONTRACEPTION
     Dosage: 1 DF;QM;VAG
     Route: 067
     Dates: start: 20041101, end: 20060501

REACTIONS (5)
  - BACK PAIN [None]
  - BLOOD PRESSURE DIASTOLIC INCREASED [None]
  - CEREBROVASCULAR ACCIDENT [None]
  - DEEP VEIN THROMBOSIS [None]
  - HEADACHE [None]
